FAERS Safety Report 9031649 (Version 3)
Quarter: 2013Q1

REPORT INFORMATION
  Report Type: Spontaneous
  Country: US (occurrence: US)
  Receive Date: 20130124
  Receipt Date: 20130221
  Transmission Date: 20140127
  Serious: Yes (Hospitalization, Other)
  Sender: FDA-Public Use
  Company Number: US-AMGEN-USASP2013003838

PATIENT
  Age: 44 Year
  Sex: Male

DRUGS (1)
  1. ENBREL [Suspect]
     Indication: PSORIASIS
     Dosage: 50 MG, QWK
     Dates: start: 20090101, end: 20120101

REACTIONS (5)
  - Urinary tract operation [Unknown]
  - Skin graft [Unknown]
  - Osteomyelitis [Not Recovered/Not Resolved]
  - Skin ulcer [Recovered/Resolved]
  - Psoriasis [Not Recovered/Not Resolved]
